FAERS Safety Report 13928937 (Version 1)
Quarter: 2017Q3

REPORT INFORMATION
  Report Type: Spontaneous
  Country: US (occurrence: US)
  Receive Date: 20170901
  Receipt Date: 20170901
  Transmission Date: 20171127
  Serious: No
  Sender: FDA-Public Use
  Company Number: US-BAYER-2017-157092

PATIENT
  Sex: Female

DRUGS (2)
  1. ALEVE [Suspect]
     Active Substance: NAPROXEN SODIUM
     Indication: BONE CONTUSION
  2. ALEVE [Suspect]
     Active Substance: NAPROXEN SODIUM
     Indication: RIB FRACTURE
     Dosage: 1 DF, UNK
     Route: 048
     Dates: end: 20170816

REACTIONS (2)
  - Product use issue [Unknown]
  - Product use in unapproved indication [Unknown]
